FAERS Safety Report 10038886 (Version 1)
Quarter: 2014Q1

REPORT INFORMATION
  Report Type: Spontaneous
  Country: GB (occurrence: GB)
  Receive Date: 20140326
  Receipt Date: 20140326
  Transmission Date: 20141002
  Serious: Yes (Life-Threatening)
  Sender: FDA-Public Use
  Company Number: GB-GLAXOSMITHKLINE-B0978807A

PATIENT
  Age: 18 Year
  Sex: Female
  Weight: 82 kg

DRUGS (7)
  1. ONDANSETRON [Suspect]
     Indication: INDUCTION OF ANAESTHESIA
     Route: 042
     Dates: start: 20121102, end: 20121102
  2. DIPRIVAN [Suspect]
     Indication: INDUCTION OF ANAESTHESIA
     Route: 042
     Dates: start: 20121102, end: 20121102
  3. NORCURON [Suspect]
     Indication: INDUCTION OF ANAESTHESIA
     Route: 042
     Dates: start: 20121102, end: 20121102
  4. FENTANYL [Suspect]
     Indication: INDUCTION OF ANAESTHESIA
     Route: 042
     Dates: start: 20121102, end: 20121102
  5. OXYGEN [Concomitant]
  6. SEVOFLURANE [Concomitant]
  7. CONTRACEPTIVE IMPLANT [Concomitant]
     Indication: CONTRACEPTION

REACTIONS (2)
  - Bronchospasm [Recovered/Resolved]
  - Oxygen saturation decreased [Recovered/Resolved]
